FAERS Safety Report 5519526-2 (Version None)
Quarter: 2007Q4

REPORT INFORMATION
  Report Type: 
  Country: None (occurrence: None)
  Receive Date: 20071116
  Receipt Date: 20071113
  Transmission Date: 20080405
  Serious: Yes (Hospitalization)
  Sender: FDA-Public Use
  Company Number: A0694225A

PATIENT
  Age: 46 Year
  Sex: Female

DRUGS (3)
  1. ZOFRAN [Suspect]
     Indication: DRUG USE FOR UNKNOWN INDICATION
     Dosage: 12MG THREE TIMES PER DAY
     Route: 048
  2. KYTRIL [Suspect]
     Indication: DRUG USE FOR UNKNOWN INDICATION
     Route: 065
  3. PHENERGAN HCL [Concomitant]

REACTIONS (1)
  - DRUG INEFFECTIVE [None]
